FAERS Safety Report 18600656 (Version 1)
Quarter: 2020Q4

REPORT INFORMATION
  Report Type: Spontaneous
  Country: AT (occurrence: AT)
  Receive Date: 20201210
  Receipt Date: 20201210
  Transmission Date: 20210114
  Serious: Yes (Other)
  Sender: FDA-Public Use
  Company Number: AT-MYLANLABS-2020M1100520

PATIENT
  Age: 71 Year
  Sex: Male

DRUGS (2)
  1. GEWACALM [Interacting]
     Active Substance: DIAZEPAM
     Indication: DEPRESSION
     Dosage: UNK UNK, QD
     Route: 065
  2. PANTOPRAZOLE [Suspect]
     Active Substance: PANTOPRAZOLE
     Indication: PRODUCT USED FOR UNKNOWN INDICATION
     Dosage: UNK
     Route: 065

REACTIONS (4)
  - Drug interaction [Unknown]
  - Off label use [Unknown]
  - Choking [Unknown]
  - Intentional overdose [Unknown]
